FAERS Safety Report 20063156 (Version 1)
Quarter: 2021Q4

REPORT INFORMATION
  Report Type: Spontaneous
  Country: US (occurrence: US)
  Receive Date: 20211112
  Receipt Date: 20211112
  Transmission Date: 20220303
  Serious: Yes (Other)
  Sender: FDA-Public Use
  Company Number: US-PFIZER INC-202101512824

PATIENT
  Age: 27 Year
  Sex: Female
  Weight: 104.33 kg

DRUGS (1)
  1. LYRICA [Suspect]
     Active Substance: PREGABALIN
     Indication: Fibromyalgia
     Dosage: 75 MG, TWICE A DAY (ONCE IN MORNING ONCE AT NIGHT)
     Dates: start: 201203, end: 2016

REACTIONS (4)
  - Eye haemorrhage [Recovered/Resolved]
  - Hallucinations, mixed [Recovered/Resolved]
  - Hypoaesthesia [Unknown]
  - Diplopia [Unknown]
